FAERS Safety Report 5444581-8 (Version None)
Quarter: 2007Q3

REPORT INFORMATION
  Report Type: 
  Country: None (occurrence: None)
  Receive Date: 20070906
  Receipt Date: 20070828
  Transmission Date: 20080115
  Serious: Yes (Other)
  Sender: FDA-Public Use
  Company Number: GB-JNJFOC-20070706538

PATIENT
  Sex: Male
  Weight: 65 kg

DRUGS (5)
  1. PREZISTA [Suspect]
     Route: 048
  2. PREZISTA [Suspect]
     Indication: HIV INFECTION
     Route: 048
  3. ETRAVIRINE [Concomitant]
     Indication: HIV INFECTION
  4. TRUVADA [Concomitant]
     Indication: HIV INFECTION
     Dosage: 200 TO 300 MG DAILY
  5. FENOFIBRATE [Concomitant]
     Indication: LIPIDS INCREASED

REACTIONS (3)
  - BLOOD CREATINE INCREASED [None]
  - HAEMATURIA [None]
  - MYALGIA [None]
